FAERS Safety Report 16925497 (Version 2)
Quarter: 2019Q4

REPORT INFORMATION
  Report Type: Report from Study
  Country: US (occurrence: US)
  Receive Date: 20191016
  Receipt Date: 20191018
  Transmission Date: 20200122
  Serious: Yes (Other)
  Sender: FDA-Public Use
  Company Number: US-MALLINCKRODT-T201904293

PATIENT
  Age: 53 Year
  Sex: Male

DRUGS (4)
  1. REPOSITORY CORTICOTROPIN INJECTION [Suspect]
     Active Substance: CORTICOTROPIN
     Indication: NEUROTROPHIC KERATOPATHY
     Dosage: 80 UNITS/1ML, TWICE WEEKLY
     Route: 042
     Dates: start: 20190215, end: 2019
  2. REPOSITORY CORTICOTROPIN INJECTION [Suspect]
     Active Substance: CORTICOTROPIN
     Dosage: 40 UNITS
     Route: 030
     Dates: start: 2019, end: 2019
  3. REPOSITORY CORTICOTROPIN INJECTION [Suspect]
     Active Substance: CORTICOTROPIN
     Dosage: 0.4 MILLILITER, TWICE A WEEK, 32 UNITS, MONDAY/THURSDAY
     Route: 030
     Dates: start: 20190902
  4. REPOSITORY CORTICOTROPIN INJECTION [Suspect]
     Active Substance: CORTICOTROPIN
     Dosage: 32 UNITS/.4 ML,  2 TIMES PER WEEK, MONDAY/FRIDAY
     Route: 030
     Dates: start: 2019, end: 2019

REACTIONS (8)
  - Corneal transplant [Not Recovered/Not Resolved]
  - Incorrect route of product administration [None]
  - Corneal disorder [Unknown]
  - Drug ineffective [Unknown]
  - Blood pressure increased [Recovering/Resolving]
  - Feeling abnormal [None]
  - Gastroenteritis viral [Not Recovered/Not Resolved]
  - Injection site pain [Recovering/Resolving]

NARRATIVE: CASE EVENT DATE: 2019
